FAERS Safety Report 4851831-5 (Version None)
Quarter: 2005Q4

REPORT INFORMATION
  Report Type: 
  Country: None (occurrence: None)
  Receive Date: 20051125
  Receipt Date: 20041101
  Transmission Date: 20060501
  Serious: Yes (Other)
  Sender: FDA-Public Use
  Company Number: 2004081872

PATIENT
  Age: 82 Year
  Sex: Male
  Weight: 53.978 kg

DRUGS (11)
  1. TIKOSYN [Suspect]
     Indication: ATRIAL FIBRILLATION
     Dosage: ORAL
     Route: 048
     Dates: start: 20040925
  2. TIKOSYN [Suspect]
     Indication: CARDIAC PACEMAKER REMOVAL
     Dosage: ORAL
     Route: 048
     Dates: start: 20040925
  3. TIKOSYN [Suspect]
     Indication: HEART RATE IRREGULAR
     Dosage: ORAL
     Route: 048
     Dates: start: 20040925
  4. ISOSORBIDE (ISOSORBIDE) [Concomitant]
  5. VICODIN [Concomitant]
  6. LEVOSALBUTAMOL (LEVOSALBUTAMOL) [Concomitant]
  7. IPRATROPIUM BROMIDE [Concomitant]
  8. SERETIDE MITE (FLUTICASONE PROPIONATE, SALMETEROL XINAFOATE) [Concomitant]
  9. FAMOTIDINE [Concomitant]
  10. MAGNESIUM (MAGNESIUM) [Concomitant]
  11. ALL OTHER THERAPEUTIC PRODUCTS (ALL OTHER THERAPEUTIC PRODUCTS) [Concomitant]

REACTIONS (3)
  - CARDIAC FLUTTER [None]
  - HEART RATE INCREASED [None]
  - HYPERTENSION [None]
